FAERS Safety Report 7473578-1 (Version None)
Quarter: 2011Q2

REPORT INFORMATION
  Report Type: 
  Country: None (occurrence: None)
  Receive Date: 20110511
  Receipt Date: 20110502
  Transmission Date: 20111010
  Serious: Yes (Hospitalization)
  Sender: FDA-Public Use
  Company Number: US-MERCK-1012USA02366

PATIENT
  Age: 63 Year
  Sex: Female
  Weight: 69 kg

DRUGS (1)
  1. FOSAMAX [Suspect]
     Route: 048
     Dates: start: 19980101, end: 20100101

REACTIONS (19)
  - PULMONARY FIBROSIS [None]
  - FEMUR FRACTURE [None]
  - HYPERLIPIDAEMIA [None]
  - OSTEOPOROSIS [None]
  - FALL [None]
  - BLOOD CALCIUM DECREASED [None]
  - URINARY TRACT INFECTION [None]
  - ANAEMIA [None]
  - SECRETION DISCHARGE [None]
  - URINE OUTPUT DECREASED [None]
  - LOWER LIMB FRACTURE [None]
  - BLOOD SODIUM DECREASED [None]
  - HYPOTENSION [None]
  - FOOT FRACTURE [None]
  - WRIST FRACTURE [None]
  - HAEMORRHAGIC ANAEMIA [None]
  - ATELECTASIS [None]
  - HYPERTENSION [None]
  - CONSTIPATION [None]
